FAERS Safety Report 25955823 (Version 1)
Quarter: 2025Q4

REPORT INFORMATION
  Report Type: Spontaneous
  Country: EU (occurrence: EU)
  Receive Date: 20251024
  Receipt Date: 20251024
  Transmission Date: 20260117
  Serious: Yes (Other)
  Sender: ALKEM
  Company Number: EU-ALKEM LABORATORIES LIMITED-DE-ALKEM-2025-11260

PATIENT
  Age: 49 Year
  Sex: Male

DRUGS (3)
  1. MESALAMINE [Interacting]
     Active Substance: MESALAMINE
     Indication: Product used for unknown indication
     Dosage: 400 MILLIGRAM
     Route: 065
  2. OMEPRAZOLE [Interacting]
     Active Substance: OMEPRAZOLE
     Indication: Product used for unknown indication
     Dosage: 20 MILLIGRAM
     Route: 065
  3. CORTISONE [Interacting]
     Active Substance: CORTISONE
     Indication: Product used for unknown indication
     Dosage: 10 MILLIGRAM
     Route: 065

REACTIONS (2)
  - Drug interaction [Unknown]
  - Hepatotoxicity [Unknown]
